FAERS Safety Report 5556750-7 (Version None)
Quarter: 2007Q4

REPORT INFORMATION
  Report Type: 
  Country: None (occurrence: None)
  Receive Date: 20071128
  Receipt Date: 20070815
  Transmission Date: 20080405
  Serious: Yes (Other)
  Sender: FDA-Public Use
  Company Number: CIP07001810

PATIENT
  Age: 43 Year
  Sex: Female

DRUGS (31)
  1. ACTONEL [Suspect]
     Indication: OSTEOPOROSIS
     Dosage: 35 MG ONCE A WEEK, ORAL
     Route: 048
     Dates: start: 20050519, end: 20051101
  2. FOSAMAX [Suspect]
     Indication: OSTEOPOROSIS
     Dosage: ORAL
     Route: 048
     Dates: start: 20060101
  3. CORTICOSTEROIDS() [Suspect]
     Indication: MULTIPLE SCLEROSIS
  4. VICODIN [Suspect]
  5. DESIREL (TRAZODONE HYDROCHLORIDE) [Concomitant]
  6. LIPITOR [Concomitant]
  7. SINGULAIR [Concomitant]
  8. TEGRETOL [Concomitant]
  9. FLEXERIL [Concomitant]
  10. KLONOPIN [Concomitant]
  11. ANTIVERT [Concomitant]
  12. NEXIUM [Concomitant]
  13. EFFEXOR [Concomitant]
  14. SYMMETREL [Concomitant]
  15. LAMICTAL [Concomitant]
  16. ZYPREXA [Concomitant]
  17. ZYRTEC [Concomitant]
  18. POTASSIUM (POTASSIUM) [Concomitant]
  19. BACLOFEN [Concomitant]
  20. ELAVIL [Concomitant]
  21. DEPAKOTE [Concomitant]
  22. PREVACID [Concomitant]
  23. CHLORPROMAZINE [Concomitant]
  24. ACETAMINOPHEN W/ PROPOXYPHENE HCL [Concomitant]
  25. SMZ-TMP (TRIMETHOPRIM, SULFAMETHOXAZOLE) [Concomitant]
  26. CYPROHEPTADINE HCL [Concomitant]
  27. LORATADINE [Concomitant]
  28. AMITRIPTYLINE HCL [Concomitant]
  29. FLUCONAZOLE [Concomitant]
  30. TEMAZEPAM [Concomitant]
  31. TESTOSTERONE [Concomitant]

REACTIONS (20)
  - DENTAL CARIES [None]
  - DENTAL NECROSIS [None]
  - EXOSTOSIS [None]
  - GINGIVITIS [None]
  - HEADACHE [None]
  - JAW DISORDER [None]
  - LYMPH NODE PAIN [None]
  - MASTICATION DISORDER [None]
  - OEDEMA MOUTH [None]
  - ORAL PAIN [None]
  - OSTEONECROSIS [None]
  - PAIN IN JAW [None]
  - PERIODONTITIS [None]
  - PULPITIS DENTAL [None]
  - RESORPTION BONE INCREASED [None]
  - SENSITIVITY OF TEETH [None]
  - STOMATITIS [None]
  - TEMPOROMANDIBULAR JOINT SYNDROME [None]
  - TOOTH ABSCESS [None]
  - TOOTHACHE [None]
